FAERS Safety Report 7062805-0 (Version None)
Quarter: 2010Q4

REPORT INFORMATION
  Report Type: 
  Country: None (occurrence: None)
  Receive Date: 20101026
  Receipt Date: 20100128
  Transmission Date: 20110411
  Serious: Yes (Other)
  Sender: FDA-Public Use
  Company Number: US-PFIZER INC-2010013183

PATIENT
  Sex: Male
  Weight: 99.773 kg

DRUGS (3)
  1. LIPITOR [Suspect]
     Indication: BLOOD CHOLESTEROL INCREASED
     Dosage: 40 MG, 1X/DAY
     Dates: start: 20080301, end: 20100127
  2. TOPROL-XL [Concomitant]
     Indication: BLOOD PRESSURE ABNORMAL
     Dosage: UNK
  3. LISINOPRIL [Concomitant]
     Dosage: UNK

REACTIONS (2)
  - ARTHRALGIA [None]
  - TENDON RUPTURE [None]
